FAERS Safety Report 5139842-6 (Version None)
Quarter: 2006Q4

REPORT INFORMATION
  Report Type: 
  Country: None (occurrence: None)
  Receive Date: 20061025
  Receipt Date: 20061025
  Transmission Date: 20070319
  Serious: Yes (Other)
  Sender: FDA-Public Use
  Company Number: None

PATIENT
  Age: 39 Year
  Sex: Male

DRUGS (2)
  1. ISOVUE-300 [Suspect]
     Indication: SCAN WITH CONTRAST
     Dosage: 130 ML IV
     Route: 042
     Dates: start: 20060518
  2. BENADRYL [Concomitant]

REACTIONS (3)
  - DYSPNOEA [None]
  - THROAT TIGHTNESS [None]
  - URTICARIA [None]
